FAERS Safety Report 7470133-4 (Version None)
Quarter: 2011Q2

REPORT INFORMATION
  Report Type: 
  Country: None (occurrence: None)
  Receive Date: 20110510
  Receipt Date: 20110503
  Transmission Date: 20111010
  Serious: Yes (Hospitalization)
  Sender: FDA-Public Use
  Company Number: A0925584A

PATIENT
  Age: 54 Year
  Sex: Female

DRUGS (4)
  1. ADVAIR DISKUS 100/50 [Suspect]
     Indication: ASTHMA
     Dosage: 1PUFF TWICE PER DAY
     Route: 055
  2. CITALOPRAM HYDROBROMIDE [Concomitant]
  3. SIMVASTATIN [Concomitant]
  4. LISINOPRIL [Concomitant]

REACTIONS (5)
  - PNEUMONIA [None]
  - RETCHING [None]
  - CHRONIC OBSTRUCTIVE PULMONARY DISEASE [None]
  - COMPRESSION FRACTURE [None]
  - OSTEOPOROSIS [None]
